FAERS Safety Report 17812592 (Version 1)
Quarter: 2020Q2

REPORT INFORMATION
  Report Type: Spontaneous
  Country: US (occurrence: US)
  Receive Date: 20200521
  Receipt Date: 20200521
  Transmission Date: 20200714
  Serious: No
  Sender: FDA-Public Use
  Company Number: None

PATIENT
  Age: 69 Year
  Sex: Male
  Weight: 73.6 kg

DRUGS (9)
  1. REMDESIVIR. [Suspect]
     Active Substance: REMDESIVIR
     Indication: COVID-19
     Route: 042
     Dates: start: 20200520, end: 20200521
  2. LEVOPHED [Concomitant]
     Active Substance: NOREPINEPHRINE BITARTRATE
     Dates: start: 20200520
  3. VANCOMCYIN [Concomitant]
     Active Substance: VANCOMYCIN
     Dates: start: 20200520
  4. SINEMET [Concomitant]
     Active Substance: CARBIDOPA\LEVODOPA
  5. DILAUDID [Concomitant]
     Active Substance: HYDROMORPHONE HYDROCHLORIDE
     Dates: start: 20200520
  6. METHYLPREDNISOLONE. [Concomitant]
     Active Substance: METHYLPREDNISOLONE
     Dates: start: 20200515
  7. PROPOFOL. [Concomitant]
     Active Substance: PROPOFOL
     Dates: start: 20200520
  8. ZOSYN [Concomitant]
     Active Substance: PIPERACILLIN SODIUM\TAZOBACTAM SODIUM
     Dates: start: 20200520
  9. ACTEMRA [Concomitant]
     Active Substance: TOCILIZUMAB
     Dates: start: 20200520

REACTIONS (1)
  - Liver function test increased [None]

NARRATIVE: CASE EVENT DATE: 20200521
